FAERS Safety Report 8366390-2 (Version None)
Quarter: 2012Q2

REPORT INFORMATION
  Report Type: 
  Country: None (occurrence: None)
  Receive Date: 20120517
  Receipt Date: 20120514
  Transmission Date: 20120825
  Serious: Yes (Hospitalization)
  Sender: FDA-Public Use
  Company Number: US-PFIZER INC-2012105058

PATIENT
  Sex: Female

DRUGS (1)
  1. DILANTIN [Suspect]
     Dosage: 400 MG, UNK
     Route: 048

REACTIONS (2)
  - BLOOD MAGNESIUM INCREASED [None]
  - FALL [None]
